FAERS Safety Report 4300979-2 (Version None)
Quarter: 2004Q1

REPORT INFORMATION
  Report Type: 
  Country: None (occurrence: None)
  Receive Date: 20040219
  Receipt Date: 20040204
  Transmission Date: 20041129
  Serious: Yes (Death, Hospitalization)
  Sender: FDA-Public Use
  Company Number: US-SHR-04-020870

PATIENT
  Age: 61 Year
  Sex: Female

DRUGS (1)
  1. BETASERON (INTERFEERON BETA - 1B) INJECTION, 250UG [Suspect]
     Indication: PROGRESSIVE MULTIPLE SCLEROSIS
     Dosage: 8 MIU, EVERY 2D, SUBCUTANEOUS
     Route: 058
     Dates: start: 20020101, end: 20040120

REACTIONS (3)
  - CARDIAC FAILURE [None]
  - DISEASE PROGRESSION [None]
  - MULTIPLE SCLEROSIS [None]
